FAERS Safety Report 7169984-5 (Version None)
Quarter: 2010Q4

REPORT INFORMATION
  Report Type: 
  Country: None (occurrence: None)
  Receive Date: 20101206
  Receipt Date: 20101118
  Transmission Date: 20110411
  Serious: Yes (Death, Life-Threatening, Hospitalization)
  Sender: FDA-Public Use
  Company Number: 2009002186

PATIENT
  Age: 63 Year
  Sex: Male
  Weight: 48.7 kg

DRUGS (18)
  1. ERLOTINIB (ERLOTINIB) (TABLET) (ERLOTINIB) [Suspect]
     Indication: NON-SMALL CELL LUNG CANCER
     Dosage: 150 MG, QD, ORAL
     Route: 048
     Dates: start: 20090604, end: 20090616
  2. OXYCONTIN [Concomitant]
  3. OXYCODONE HCL [Concomitant]
  4. ULTRACET [Concomitant]
  5. FENTANYL-100 [Concomitant]
  6. TRIMEBUTINE MALEATE [Concomitant]
  7. MEGESTROL ACETATE [Concomitant]
  8. LOPERAMIDE OXIDE [Concomitant]
  9. DULCOLAX [Concomitant]
  10. DOCUSATE SODIUM [Concomitant]
  11. LACTULOSE [Concomitant]
  12. MAGNESIUM OXIDE [Concomitant]
  13. VITACAL [Concomitant]
  14. ALENDRONATE SODIUM [Concomitant]
  15. MORPHINE [Concomitant]
  16. ONDANSETRON [Concomitant]
  17. POVIDONE IODINE [Concomitant]
  18. BENZYDAMINE HYDROCHLORIDE [Concomitant]

REACTIONS (3)
  - INTERSTITIAL LUNG DISEASE [None]
  - PNEUMONIA [None]
  - RESPIRATORY FAILURE [None]
